FAERS Safety Report 10533600 (Version 1)
Quarter: 2014Q4

REPORT INFORMATION
  Report Type: Spontaneous
  Country: IN (occurrence: IN)
  Receive Date: 20141022
  Receipt Date: 20141022
  Transmission Date: 20150529
  Serious: Yes (Hospitalization, Other)
  Sender: FDA-Public Use
  Company Number: IN-009507513-1410IND010093

PATIENT
  Age: 49 Year
  Sex: Male
  Weight: 69 kg

DRUGS (1)
  1. JANUMET [Suspect]
     Active Substance: METFORMIN HYDROCHLORIDE\SITAGLIPTIN PHOSPHATE
     Indication: DIABETES MELLITUS
     Dosage: 2 DF, BID
     Route: 048

REACTIONS (2)
  - Blood glucose increased [Recovering/Resolving]
  - Paralysis [Recovering/Resolving]

NARRATIVE: CASE EVENT DATE: 201408
